FAERS Safety Report 6535775-9 (Version None)
Quarter: 2010Q1

REPORT INFORMATION
  Report Type: 
  Country: None (occurrence: None)
  Receive Date: 20100113
  Receipt Date: 20100105
  Transmission Date: 20100710
  Serious: Yes (Death)
  Sender: FDA-Public Use
  Company Number: US-ROCHE-675242

PATIENT
  Sex: Female
  Weight: 90.7 kg

DRUGS (9)
  1. CAPECITABINE [Suspect]
     Dosage: DOSE X14 DAYS IN 21 DAY CYCLE
     Route: 048
     Dates: start: 20091009, end: 20091217
  2. LISINOPRIL [Concomitant]
     Indication: BLOOD PRESSURE
     Route: 048
  3. HYDROCHLOROTHIAZIDE [Concomitant]
     Indication: BLOOD PRESSURE
     Route: 048
  4. PERCOCET [Concomitant]
     Indication: PAIN
     Dosage: DOSE: 7.5/325 MG AS NEEDED
     Route: 048
  5. PREVACID [Concomitant]
     Route: 048
  6. LEXAPRO [Concomitant]
     Indication: DEPRESSION
     Dosage: DOSE: 20
     Route: 048
  7. IXEMPRA KIT [Concomitant]
     Route: 065
     Dates: start: 20091009
  8. L-CARNITINE [Concomitant]
     Dosage: DAILY
  9. FLEXERIL [Concomitant]
     Dosage: FREQUENCY: NIGHTLY. 10/30

REACTIONS (1)
  - COMPLETED SUICIDE [None]
